FAERS Safety Report 23354717 (Version 6)
Quarter: 2024Q3

REPORT INFORMATION
  Report Type: Spontaneous
  Country: JP (occurrence: None)
  Receive Date: 20240101
  Receipt Date: 20240705
  Transmission Date: 20241017
  Serious: Yes (Death, Life-Threatening, Hospitalization, Other)
  Sender: ASTRAZENECA
  Company Number: 2023A285241

PATIENT
  Age: 82 Year
  Sex: Male

DRUGS (12)
  1. IMFINZI [Suspect]
     Active Substance: DURVALUMAB
     Indication: Hepatocellular carcinoma
     Route: 041
     Dates: start: 20231121, end: 20231121
  2. IMJUDO [Suspect]
     Active Substance: TREMELIMUMAB\TREMELIMUMAB-ACTL
     Indication: Hepatocellular carcinoma
     Route: 041
     Dates: start: 20231121, end: 20231121
  3. HEPAACT [Concomitant]
     Dosage: AFTER EACH MEAL
     Route: 048
     Dates: start: 20231023, end: 20231219
  4. OLMESARTAN MEDOXOMIL [Concomitant]
     Active Substance: OLMESARTAN MEDOXOMIL
     Dosage: AFTER BREAKFAST
     Route: 048
     Dates: end: 20231128
  5. AZELNIDIPINE [Concomitant]
     Active Substance: AZELNIDIPINE
     Dosage: AFTER BREAKFAST
     Route: 048
     Dates: end: 20231128
  6. EPLERENONE [Concomitant]
     Active Substance: EPLERENONE
     Dosage: AFTER BREAKFAST
     Route: 048
     Dates: end: 20231128
  7. DOXAZOSIN [Concomitant]
     Active Substance: DOXAZOSIN MESYLATE
     Dosage: AFTER DINNER
     Route: 048
     Dates: end: 20231127
  8. MAGNESIUM OXIDE [Concomitant]
     Active Substance: MAGNESIUM OXIDE
     Indication: Constipation
     Route: 048
     Dates: start: 20231121, end: 20231125
  9. URSODIOL [Concomitant]
     Active Substance: URSODIOL
     Dosage: AFTER EACH MEAL
     Route: 048
     Dates: start: 20231023, end: 20231219
  10. VONOPRAZAN FUMARATE [Concomitant]
     Active Substance: VONOPRAZAN FUMARATE
     Route: 048
  11. ESAXERENONE [Concomitant]
     Active Substance: ESAXERENONE
     Route: 048
  12. TOPIROXOSTAT [Concomitant]
     Active Substance: TOPIROXOSTAT
     Route: 048

REACTIONS (6)
  - Immune-mediated lung disease [Fatal]
  - Interstitial lung disease [Fatal]
  - Acute kidney injury [Recovered/Resolved]
  - Immune-mediated enterocolitis [Recovering/Resolving]
  - Pleural effusion [Unknown]
  - Dehydration [Recovering/Resolving]

NARRATIVE: CASE EVENT DATE: 20231124
